FAERS Safety Report 17559937 (Version 2)
Quarter: 2022Q1

REPORT INFORMATION
  Report Type: Spontaneous
  Country: GB (occurrence: GB)
  Receive Date: 20200319
  Receipt Date: 20220301
  Transmission Date: 20220423
  Serious: Yes (Other)
  Sender: FDA-Public Use
  Company Number: GB-PFIZER INC-2019141780

PATIENT
  Age: 59 Year
  Sex: Male

DRUGS (1)
  1. ENBREL [Suspect]
     Active Substance: ETANERCEPT
     Indication: Rheumatoid arthritis
     Dosage: 50 MG, UNK (EVERY OTHER WEEK)
     Route: 058

REACTIONS (3)
  - Chest discomfort [Recovering/Resolving]
  - Lower respiratory tract infection [Recovering/Resolving]
  - Off label use [Unknown]
